FAERS Safety Report 5778909-6 (Version None)
Quarter: 2008Q2

REPORT INFORMATION
  Report Type: 
  Country: None (occurrence: None)
  Receive Date: 20080619
  Receipt Date: 20080610
  Transmission Date: 20081010
  Serious: Yes (Hospitalization)
  Sender: FDA-Public Use
  Company Number: US-MERCK-0806USA01925

PATIENT
  Age: 33 Year
  Sex: Male

DRUGS (1)
  1. PROPECIA [Suspect]
     Indication: ANDROGENETIC ALOPECIA
     Route: 048
     Dates: end: 20080605

REACTIONS (5)
  - ALOPECIA [None]
  - HEADACHE [None]
  - LOSS OF LIBIDO [None]
  - PAIN [None]
  - PRURITUS [None]
